FAERS Safety Report 21745994 (Version 15)
Quarter: 2023Q4

REPORT INFORMATION
  Report Type: Report from Study
  Country: CA (occurrence: CA)
  Receive Date: 20221219
  Receipt Date: 20231006
  Transmission Date: 20240109
  Serious: Yes (Hospitalization, Other)
  Sender: FDA-Public Use
  Company Number: CA-BAUSCH-BL-2021-031567

PATIENT
  Age: 41 Year
  Sex: Male
  Weight: 90.8 kg

DRUGS (9)
  1. SILIQ [Suspect]
     Active Substance: BRODALUMAB
     Indication: Psoriasis
     Dosage: 210 MG/1.5 ML, WEEK 0,1 AND 2
     Route: 058
     Dates: start: 20210729, end: 20210812
  2. SILIQ [Suspect]
     Active Substance: BRODALUMAB
     Dosage: 210 MG/1.5 ML
     Route: 058
     Dates: start: 20210909
  3. SILIQ [Suspect]
     Active Substance: BRODALUMAB
     Dosage: 210MG/ 1.5 ML, Q 2 WEEKS
     Route: 058
  4. SILIQ [Suspect]
     Active Substance: BRODALUMAB
     Dosage: 210MG/ 1.5 ML, Q 2 WEEKS
     Route: 058
     Dates: start: 20221008, end: 2022
  5. SILIQ [Suspect]
     Active Substance: BRODALUMAB
     Dosage: 210MG/ 1.5 ML, Q 2 WEEKS
     Route: 058
     Dates: start: 20230218
  6. SILIQ [Suspect]
     Active Substance: BRODALUMAB
     Dosage: 210MG/ 1.5 ML, Q 2 WEEKS
     Route: 058
     Dates: start: 20230506
  7. SILIQ [Suspect]
     Active Substance: BRODALUMAB
     Dosage: 210MG/ 1.5 ML, Q 2 WEEKS
     Route: 058
     Dates: start: 20230603
  8. CITALOPRAM [Concomitant]
     Active Substance: CITALOPRAM HYDROBROMIDE
     Indication: Product used for unknown indication
  9. ZOPICLONE [Concomitant]
     Active Substance: ZOPICLONE
     Indication: Product used for unknown indication
     Dosage: HALF TABLET BEFORE SLEEP

REACTIONS (22)
  - Epistaxis [Recovered/Resolved]
  - Hepatic cirrhosis [Not Recovered/Not Resolved]
  - Nephrolithiasis [Unknown]
  - Haemoglobin abnormal [Not Recovered/Not Resolved]
  - Ascites [Not Recovered/Not Resolved]
  - Nasal operation [Unknown]
  - Road traffic accident [Not Recovered/Not Resolved]
  - Metamorphopsia [Not Recovered/Not Resolved]
  - Cold sweat [Not Recovered/Not Resolved]
  - Hyperhidrosis [Not Recovered/Not Resolved]
  - Decreased appetite [Not Recovered/Not Resolved]
  - Emotional distress [Not Recovered/Not Resolved]
  - Feeling cold [Not Recovered/Not Resolved]
  - Ageusia [Not Recovered/Not Resolved]
  - Chills [Not Recovered/Not Resolved]
  - Tooth infection [Unknown]
  - Labyrinthitis [Recovered/Resolved]
  - Nausea [Not Recovered/Not Resolved]
  - Fatigue [Not Recovered/Not Resolved]
  - Headache [Not Recovered/Not Resolved]
  - Product dose omission issue [Unknown]
  - Intentional product use issue [Unknown]

NARRATIVE: CASE EVENT DATE: 20210101
